FAERS Safety Report 25479355 (Version 3)
Quarter: 2025Q3

REPORT INFORMATION
  Report Type: Report from Study
  Country: CA (occurrence: CA)
  Receive Date: 20250625
  Receipt Date: 20250728
  Transmission Date: 20251020
  Serious: Yes (Other)
  Sender: BAUSCH AND LOMB
  Company Number: CA-BAUSCH-BL-2025-005526

PATIENT
  Age: 33 Year
  Sex: Male

DRUGS (2)
  1. SILIQ [Suspect]
     Active Substance: BRODALUMAB
     Indication: Psoriasis
     Dosage: 210MG/1.5ML, WEEKLY (WEEK 0, 1 AND 2)
     Route: 058
     Dates: start: 20250423, end: 20250507
  2. SILIQ [Suspect]
     Active Substance: BRODALUMAB
     Dosage: 210MG/1.5ML, WEEKLY (Q2 WEEKS)
     Route: 058
     Dates: start: 202505

REACTIONS (10)
  - Blood pressure increased [Recovering/Resolving]
  - Dysarthria [Unknown]
  - Abdominal pain upper [Unknown]
  - Dyspnoea [Unknown]
  - Injection site hypoaesthesia [Unknown]
  - Dizziness [Unknown]
  - Sleep deficit [Unknown]
  - Viral infection [Recovered/Resolved]
  - Influenza [Recovering/Resolving]
  - Inappropriate schedule of product administration [Unknown]

NARRATIVE: CASE EVENT DATE: 20250101
